FAERS Safety Report 6653518-5 (Version None)
Quarter: 2010Q1

REPORT INFORMATION
  Report Type: 
  Country: None (occurrence: None)
  Receive Date: 20100326
  Receipt Date: 20081006
  Transmission Date: 20100710
  Serious: Yes (Other)
  Sender: FDA-Public Use
  Company Number: NO-ELI_LILLY_AND_COMPANY-NO201003006452

PATIENT
  Age: 18 Year
  Sex: Female

DRUGS (2)
  1. STRATTERA [Suspect]
     Dosage: UNK, UNKNOWN
     Route: 048
  2. RITALIN [Concomitant]
     Dosage: UNK, UNKNOWN

REACTIONS (8)
  - CONVULSION [None]
  - DIZZINESS [None]
  - EYE DISORDER [None]
  - MYOCLONUS [None]
  - PALPITATIONS [None]
  - TINNITUS [None]
  - UNDERWEIGHT [None]
  - WEIGHT DECREASED [None]
